FAERS Safety Report 9275978 (Version 3)
Quarter: 2013Q2

REPORT INFORMATION
  Report Type: Report from Study
  Country: IL (occurrence: IL)
  Receive Date: 20130507
  Receipt Date: 20130523
  Transmission Date: 20140414
  Serious: Yes (Hospitalization)
  Sender: FDA-Public Use
  Company Number: IL-ABBOTT-13P-082-1083508-00

PATIENT
  Sex: Female

DRUGS (5)
  1. HUMIRA [Suspect]
     Indication: CROHN^S DISEASE
     Route: 058
     Dates: start: 20130225
  2. METROGEL [Suspect]
     Indication: PRODUCT USED FOR UNKNOWN INDICATION
  3. CIPRODEX [Suspect]
     Indication: PRODUCT USED FOR UNKNOWN INDICATION
  4. PREDNISON [Suspect]
     Indication: PRODUCT USED FOR UNKNOWN INDICATION
  5. IRON [Concomitant]
     Indication: MINERAL SUPPLEMENTATION
     Dates: start: 201305

REACTIONS (6)
  - Intestinal obstruction [Recovered/Resolved]
  - Abdominal pain [Not Recovered/Not Resolved]
  - Vomiting [Recovered/Resolved]
  - Inflammation [Recovering/Resolving]
  - Dizziness [Recovered/Resolved]
  - Feeling abnormal [Recovered/Resolved]
